FAERS Safety Report 9156027 (Version 24)
Quarter: 2015Q4

REPORT INFORMATION
  Report Type: Report from Study
  Country: DE (occurrence: DE)
  Receive Date: 20130311
  Receipt Date: 20151007
  Transmission Date: 20160305
  Serious: Yes (Hospitalization, Other)
  Sender: FDA-Public Use
  Company Number: DE-ROCHE-1191152

PATIENT
  Age: 51 Year
  Sex: Female
  Weight: 53 kg

DRUGS (10)
  1. MCP TROPFEN [Concomitant]
     Active Substance: METOCLOPRAMIDE
     Route: 048
     Dates: start: 20130212
  2. TOREM [Concomitant]
     Active Substance: TORSEMIDE
     Route: 048
     Dates: start: 20130212
  3. TRASTUZUMAB EMTANSINE [Suspect]
     Active Substance: ADO-TRASTUZUMAB EMTANSINE
     Indication: HER-2 POSITIVE BREAST CANCER
     Dosage: DOSE 3.6MG/KG AS PER PROTOCOL.  LAST DOSE:01/FEB/2013. LAST DOSE PRIOR TO THE LIFE THREATENING THROM
     Route: 042
     Dates: start: 20130201, end: 20130314
  4. TRASTUZUMAB EMTANSINE [Suspect]
     Active Substance: ADO-TRASTUZUMAB EMTANSINE
     Dosage: DOSE REDUCED TO 3.0MG/KG DUE TO EVENTS.
     Route: 042
     Dates: start: 20130314, end: 20130329
  5. AUGMENTIN [Concomitant]
     Active Substance: AMOXICILLIN\CLAVULANATE POTASSIUM
     Dosage: 875/125 MG
     Route: 048
     Dates: start: 20130212, end: 20130222
  6. CIPROFLOXACIN. [Concomitant]
     Active Substance: CIPROFLOXACIN
     Route: 065
     Dates: start: 20130205, end: 20130210
  7. ALLOPURINOL. [Concomitant]
     Active Substance: ALLOPURINOL
     Route: 048
     Dates: start: 20130212
  8. PANTOZOL [Concomitant]
     Active Substance: PANTOPRAZOLE SODIUM
     Route: 048
     Dates: start: 20130212
  9. BEPANTHEN (GERMANY) [Concomitant]
     Route: 061
  10. NOVALGIN [Concomitant]
     Active Substance: METAMIZOLE SODIUM
     Route: 048

REACTIONS (3)
  - Thrombocytopenia [Recovered/Resolved]
  - Pyrexia [Recovered/Resolved]
  - Ascites [Recovered/Resolved]

NARRATIVE: CASE EVENT DATE: 20130212
